FAERS Safety Report 5534110-2 (Version None)
Quarter: 2007Q4

REPORT INFORMATION
  Report Type: 
  Country: None (occurrence: None)
  Receive Date: 20071130
  Receipt Date: 20071120
  Transmission Date: 20080405
  Serious: No
  Sender: FDA-Public Use
  Company Number: 2007-167948-NL

PATIENT
  Sex: Female

DRUGS (2)
  1. MIRTAZAPINE [Suspect]
     Dosage: 15 MG
     Dates: start: 20071111
  2. SERTRALINE [Concomitant]

REACTIONS (4)
  - ABASIA [None]
  - DEPRESSED MOOD [None]
  - ELECTRIC SHOCK [None]
  - FEELING DRUNK [None]
